FAERS Safety Report 7367438-4 (Version None)
Quarter: 2011Q1

REPORT INFORMATION
  Report Type: 
  Country: None (occurrence: None)
  Receive Date: 20110322
  Receipt Date: 20110311
  Transmission Date: 20110831
  Serious: Yes (Other)
  Sender: FDA-Public Use
  Company Number: US-PFIZER INC-2004102771

PATIENT
  Sex: Female

DRUGS (4)
  1. BENADRYL [Suspect]
     Dosage: UNK
  2. ZANAFLEX [Suspect]
     Dosage: 4 MG, 2X/DAY
     Dates: start: 20010101
  3. NEURONTIN [Suspect]
     Indication: PAIN
     Dosage: 600 MG, 3X/DAY
     Dates: start: 20010101
  4. XANAX [Suspect]
     Dosage: 1 MG, 3X/DAY

REACTIONS (6)
  - SUICIDE ATTEMPT [None]
  - SUICIDAL IDEATION [None]
  - MULTIPLE DRUG OVERDOSE [None]
  - LOSS OF CONSCIOUSNESS [None]
  - JOINT INJURY [None]
  - MENTAL DISORDER [None]
